FAERS Safety Report 5168555-X (Version None)
Quarter: 2006Q4

REPORT INFORMATION
  Report Type: 
  Country: None (occurrence: None)
  Receive Date: 20061208
  Receipt Date: 20061130
  Transmission Date: 20070319
  Serious: Yes (Other)
  Sender: FDA-Public Use
  Company Number: JP-MERCK-0612USA00322

PATIENT
  Age: 12 Year
  Sex: Male
  Weight: 30 kg

DRUGS (4)
  1. SINGULAIR [Suspect]
     Indication: ASTHMA
     Route: 048
     Dates: start: 20061113, end: 20061114
  2. NIFLAN [Concomitant]
     Indication: NASOPHARYNGITIS
     Route: 048
     Dates: start: 20061113, end: 20061115
  3. MEQUITAZINE [Concomitant]
     Indication: ASTHMA
     Route: 048
     Dates: start: 20061113
  4. SPIROPENT [Concomitant]
     Indication: ASTHMA
     Route: 048
     Dates: start: 20061113

REACTIONS (2)
  - ASTHMA [None]
  - PRESCRIBED OVERDOSE [None]
